FAERS Safety Report 9133893 (Version 1)
Quarter: 2013Q1

REPORT INFORMATION
  Report Type: Spontaneous
  Country: US (occurrence: US)
  Receive Date: 20130119
  Receipt Date: 20130119
  Transmission Date: 20140127
  Serious: Yes (Life-Threatening)
  Sender: FDA-Public Use
  Company Number: US-ALLERGAN-1201116US

PATIENT
  Age: 53 Year
  Sex: Female
  Weight: 63.95 kg

DRUGS (1)
  1. BOTOX? [Suspect]
     Indication: MIGRAINE
     Dosage: 155 UNITS, SINGLE
     Route: 030
     Dates: start: 20111026, end: 20111026

REACTIONS (3)
  - Anaphylactic reaction [Recovered/Resolved]
  - Dysphonia [Recovered/Resolved]
  - Swelling face [Recovered/Resolved]
